FAERS Safety Report 9820858 (Version 1)
Quarter: 2014Q1

REPORT INFORMATION
  Report Type: Spontaneous
  Country: US (occurrence: None)
  Receive Date: 20140114
  Receipt Date: 20140114
  Transmission Date: 20141002
  Serious: Yes (Disabling)
  Sender: FDA-Public Use
  Company Number: None

PATIENT
  Age: 64 Year
  Sex: Female
  Weight: 68.04 kg

DRUGS (3)
  1. BUPROPION HCL [Suspect]
     Indication: DEPRESSION
     Route: 048
     Dates: start: 20090116, end: 20140113
  2. BUPROPION HCL [Suspect]
     Indication: MOOD SWINGS
     Route: 048
     Dates: start: 20090116, end: 20140113
  3. BUPROPION HCL [Suspect]
     Route: 048
     Dates: start: 20090116, end: 20140113

REACTIONS (4)
  - Headache [None]
  - Anxiety [None]
  - Jaw disorder [None]
  - Bruxism [None]
